APPROVED DRUG PRODUCT: BUPIVACAINE HYDROCHLORIDE AND EPINEPHRINE
Active Ingredient: BUPIVACAINE HYDROCHLORIDE; EPINEPHRINE BITARTRATE
Strength: 0.5%;0.0091MG/ML
Dosage Form/Route: INJECTABLE;INJECTION
Application: N022046 | Product #001
Applicant: HOSPIRA INC
Approved: Jul 13, 1983 | RLD: Yes | RS: No | Type: DISCN